FAERS Safety Report 26128892 (Version 1)
Quarter: 2025Q4

REPORT INFORMATION
  Report Type: Report from Study
  Country: JP (occurrence: JP)
  Receive Date: 20251208
  Receipt Date: 20251208
  Transmission Date: 20260117
  Serious: Yes (Death, Hospitalization, Other)
  Sender: ROCHE
  Company Number: JP-CHUGAI-2025038996AA

PATIENT
  Age: 71 Year
  Sex: Male
  Weight: 61.4 kg

DRUGS (2)
  1. AVASTIN [Suspect]
     Active Substance: BEVACIZUMAB
     Indication: Hepatocellular carcinoma
     Dosage: 950 MILLIGRAM, ONCE/3WEEKS
     Route: 042
     Dates: start: 20210217, end: 20210922
  2. TECENTRIQ [Suspect]
     Active Substance: ATEZOLIZUMAB
     Indication: Hepatocellular carcinoma
     Dosage: 1200 MILLIGRAM, ONCE/3WEEKS
     Route: 042
     Dates: start: 20210217, end: 20210922

REACTIONS (3)
  - Ascites [Recovering/Resolving]
  - Portal hypertension [Unknown]
  - Disease progression [Fatal]

NARRATIVE: CASE EVENT DATE: 20210922
